FAERS Safety Report 7179664-8 (Version None)
Quarter: 2010Q4

REPORT INFORMATION
  Report Type: 
  Country: None (occurrence: None)
  Receive Date: 20101221
  Receipt Date: 20100907
  Transmission Date: 20110411
  Serious: Yes (Death)
  Sender: FDA-Public Use
  Company Number: HK-ROCHE-725590

PATIENT
  Age: 88 Year
  Sex: Male
  Weight: 50 kg

DRUGS (11)
  1. OSELTAMIVIR [Suspect]
     Indication: INFLUENZA
     Route: 048
     Dates: start: 20100901, end: 20100907
  2. SENNA [Concomitant]
     Dates: start: 20100901, end: 20100906
  3. HYDROCORTISONE [Concomitant]
     Dates: start: 20100901, end: 20100907
  4. VENTOLIN [Concomitant]
     Dosage: 24 PUFFS
     Dates: start: 20100901, end: 20100907
  5. ATROVENT [Concomitant]
     Dosage: 24 PUFFS
     Dates: start: 20100901, end: 20100907
  6. BECLOFORTE [Concomitant]
     Dosage: 4 PUFFS
     Dates: start: 20100901, end: 20100906
  7. ENZYPLEX [Concomitant]
     Dosage: 3 TAB
     Dates: start: 20100901, end: 20100906
  8. PREDNISOLONE [Concomitant]
     Dates: start: 20100903, end: 20100905
  9. ZANTAC [Concomitant]
     Dates: start: 20100906, end: 20100907
  10. AUGMENTIN '125' [Concomitant]
     Dates: start: 20100901, end: 20100903
  11. AUGMENTIN '125' [Concomitant]
     Dates: start: 20100903, end: 20100906

REACTIONS (1)
  - RESPIRATORY FAILURE [None]
